FAERS Safety Report 4595163-1 (Version None)
Quarter: 2005Q1

REPORT INFORMATION
  Report Type: 
  Country: None (occurrence: None)
  Receive Date: 20050225
  Receipt Date: 20050214
  Transmission Date: 20050727
  Serious: Yes (Other)
  Sender: FDA-Public Use
  Company Number: 2005US000145

PATIENT
  Sex: Female

DRUGS (8)
  1. PROGRAF [Suspect]
  2. EPOETIN ALFA (EPOETIN ALFA) INJECTION [Suspect]
     Indication: ANAEMIA
     Dosage: 40000 IU, WEEKLY, SUBCUTANEOUS
     Route: 058
     Dates: start: 20041015, end: 20041219
  3. PEGINTERFERON ALFA-2B (PEGINTERFERON ALFA-2B) [Suspect]
     Indication: HEPATITIS C
  4. RIBAVIRIN [Suspect]
     Indication: HEPATITIS C
  5. DARBEPOETIN ALFA (DARBEPOETIN ALFA) [Suspect]
     Indication: ANAEMIA
  6. INTERFERON (INTERFERON) [Suspect]
     Dates: start: 20041015, end: 20041220
  7. LAMIVUDINE [Suspect]
  8. IMMUNOSUPPRESSIVE AGENTS [Concomitant]

REACTIONS (2)
  - BONE MARROW TOXICITY [None]
  - THERAPEUTIC RESPONSE DECREASED [None]
